FAERS Safety Report 9777631 (Version 1)
Quarter: 2013Q4

REPORT INFORMATION
  Report Type: Spontaneous
  Country: IT (occurrence: IT)
  Receive Date: 20131222
  Receipt Date: 20131222
  Transmission Date: 20140711
  Serious: Yes (Other)
  Sender: FDA-Public Use
  Company Number: IT-TEVA-450880ISR

PATIENT
  Age: 51 Year
  Sex: Female

DRUGS (1)
  1. CEFTRIAXONE RATIOPHARM [Suspect]
     Indication: BRONCHITIS
     Dosage: 1 GRAM DAILY; POWDER AND SOLVENT FOR SOLUTION FOR INJECTION
     Route: 030
     Dates: start: 20131128, end: 20131128

REACTIONS (2)
  - Urticaria [Recovered/Resolved]
  - Dyspnoea [Recovered/Resolved]
